FAERS Safety Report 4600414-0 (Version None)
Quarter: 2005Q1

REPORT INFORMATION
  Report Type: 
  Country: None (occurrence: None)
  Receive Date: 20050304
  Receipt Date: 20031212
  Transmission Date: 20050727
  Serious: Yes (Death)
  Sender: FDA-Public Use
  Company Number: 03-000235

PATIENT
  Age: 42 Year
  Sex: Female

DRUGS (1)
  1. LOESTRIN FE 1.5/30 [Suspect]
     Dosage: ORAL
     Route: 048
     Dates: start: 19980101

REACTIONS (2)
  - ACUTE MYOCARDIAL INFARCTION [None]
  - CORONARY ARTERY THROMBOSIS [None]
